FAERS Safety Report 15154830 (Version 1)
Quarter: 2018Q3

REPORT INFORMATION
  Report Type: Spontaneous
  Country: US (occurrence: US)
  Receive Date: 20180620
  Receipt Date: 20180620
  Transmission Date: 20181010
  Serious: No
  Sender: FDA-Public Use
  Company Number: None

PATIENT
  Age: 35 Year
  Sex: Male

DRUGS (1)
  1. COPAXONE [Suspect]
     Active Substance: GLATIRAMER ACETATE
     Indication: ILL-DEFINED DISORDER
     Route: 058
     Dates: start: 20180417

REACTIONS (2)
  - Injection site inflammation [None]
  - Injection site induration [None]

NARRATIVE: CASE EVENT DATE: 20180511
